FAERS Safety Report 22143129 (Version 1)
Quarter: 2023Q1

REPORT INFORMATION
  Report Type: Spontaneous
  Country: US (occurrence: US)
  Receive Date: 20230327
  Receipt Date: 20230327
  Transmission Date: 20230418
  Serious: Yes (Hospitalization, Other)
  Sender: FDA-Public Use
  Company Number: US-PFIZER INC-202300128944

PATIENT
  Age: 7 Decade
  Sex: Male

DRUGS (3)
  1. DOFETILIDE [Suspect]
     Active Substance: DOFETILIDE
     Dosage: UNK
  2. PLAVIX [Concomitant]
     Active Substance: CLOPIDOGREL BISULFATE
     Indication: Myocardial infarction
     Dosage: UNK
  3. FUROSEMIDE\POTASSIUM CHLORIDE [Concomitant]
     Active Substance: FUROSEMIDE\POTASSIUM CHLORIDE
     Dosage: UNK

REACTIONS (6)
  - Myocardial infarction [Unknown]
  - Cardiac disorder [Unknown]
  - Confusional state [Unknown]
  - Amnesia [Unknown]
  - Anxiety [Unknown]
  - Weight decreased [Unknown]
